FAERS Safety Report 10141979 (Version 1)
Quarter: 2014Q2

REPORT INFORMATION
  Report Type: Spontaneous
  Country: US (occurrence: US)
  Receive Date: 20140429
  Receipt Date: 20140429
  Transmission Date: 20141212
  Serious: Yes (Hospitalization, Other)
  Sender: FDA-Public Use
  Company Number: US-MERCK-1404USA014533

PATIENT
  Age: 78 Year
  Sex: Male

DRUGS (1)
  1. INVANZ [Suspect]
     Indication: URINARY TRACT INFECTION
     Dosage: 500 MG, QD
     Route: 042

REACTIONS (1)
  - Convulsion [Recovered/Resolved]
